FAERS Safety Report 8512893-7 (Version None)
Quarter: 2012Q3

REPORT INFORMATION
  Report Type: 
  Country: None (occurrence: None)
  Receive Date: 20120716
  Receipt Date: 20120702
  Transmission Date: 20120928
  Serious: Yes (Hospitalization, Other)
  Sender: FDA-Public Use
  Company Number: PHHO2012US009879

PATIENT
  Sex: Male
  Weight: 90.975 kg

DRUGS (18)
  1. SUTENT [Suspect]
     Indication: METASTATIC RENAL CELL CARCINOMA
     Dosage: 50 MG X 4W + 2 WEEKS
     Route: 048
     Dates: start: 20120126, end: 20120517
  2. ADVAIR DISKUS 100/50 [Concomitant]
     Dosage: 250/50 UG PRN
     Dates: start: 20080101
  3. HYDROCHLOROTHIAZIDE [Suspect]
     Dosage: 12.5 MG, QD
     Route: 048
     Dates: start: 20120419
  4. AFINITOR [Suspect]
     Indication: METASTATIC RENAL CELL CARCINOMA
     Dosage: 10 MG, QD
     Route: 048
     Dates: start: 20110103, end: 20110314
  5. SODIUM PHOSPHATE MONOBASIC [Concomitant]
     Dosage: 250 MG, BID
     Route: 048
     Dates: start: 20110810
  6. SPIRIVA [Concomitant]
     Dosage: PRN
     Dates: start: 20080101
  7. NORVASC [Concomitant]
     Indication: PROPHYLAXIS
     Dosage: 10 MG, QD
     Route: 048
     Dates: start: 20100701
  8. PSYLLIUM HUSK [Concomitant]
     Dosage: UNK
     Route: 048
     Dates: start: 20120222
  9. REMERON [Concomitant]
     Dosage: 15 MG, QHS
     Route: 048
     Dates: start: 20120222
  10. ASPIRIN [Concomitant]
     Indication: PAIN
     Dosage: 81 MG, QD
     Route: 048
     Dates: start: 20100601
  11. VITAMIN B COMPLEX CAP [Concomitant]
     Indication: VITAMIN B COMPLEX DEFICIENCY
     Dosage: 1 DF, QD
     Route: 048
     Dates: start: 20100601
  12. SUTENT [Suspect]
     Dosage: 37.5 MG X 4W + 2 WEEKS
     Route: 048
     Dates: start: 20120531
  13. POTASSIUM PHOSPHATE DIBASIC [Concomitant]
     Dosage: 250 MG, BID
     Route: 048
     Dates: start: 20110810
  14. IMODIUM [Concomitant]
     Dosage: 2 DF, PRN
     Route: 048
     Dates: start: 20120222
  15. MOL-IRON [Concomitant]
     Indication: MINERAL SUPPLEMENTATION
     Dosage: 325 MG, QD
     Route: 048
     Dates: start: 20110801
  16. HYTRIN [Concomitant]
     Dosage: 10 MG, QHS
     Route: 048
     Dates: start: 20120308
  17. AFINITOR [Suspect]
     Dosage: 5 MG, QD
     Route: 048
     Dates: start: 20110321, end: 20120102
  18. NORVASC [Concomitant]
     Dosage: UNK
     Route: 048
     Dates: start: 20120425

REACTIONS (2)
  - SYNCOPE [None]
  - DEHYDRATION [None]
